FAERS Safety Report 6051242-3 (Version None)
Quarter: 2009Q1

REPORT INFORMATION
  Report Type: 
  Country: None (occurrence: None)
  Receive Date: 20090126
  Receipt Date: 20090122
  Transmission Date: 20090719
  Serious: Yes (Life-Threatening)
  Sender: FDA-Public Use
  Company Number: GB-ASTRAZENECA-2009GB00329

PATIENT
  Age: 50 Year
  Sex: Female

DRUGS (3)
  1. PROPOFOL [Suspect]
     Dosage: 100 MG
     Route: 042
  2. FENTANYL CITRATE [Suspect]
     Dosage: 10 UG
     Route: 042
  3. CISATRACURIUM BESYLATE [Suspect]
     Dosage: 6 MG
     Route: 042

REACTIONS (1)
  - ANAPHYLACTIC SHOCK [None]
